FAERS Safety Report 4526804-2 (Version None)
Quarter: 2004Q4

REPORT INFORMATION
  Report Type: 
  Country: None (occurrence: None)
  Receive Date: 20041213
  Receipt Date: 20041129
  Transmission Date: 20050328
  Serious: Yes (Other)
  Sender: FDA-Public Use
  Company Number: 0400050EN0020P

PATIENT
  Age: 5 Year
  Sex: Female

DRUGS (3)
  1. ONCASPAR [Suspect]
     Indication: ACUTE LYMPHOCYTIC LEUKAEMIA
  2. VINCRISTINE [Concomitant]
  3. DEXAMETHASONE [Concomitant]

REACTIONS (1)
  - HYPERLIPIDAEMIA [None]
